FAERS Safety Report 24042401 (Version 3)
Quarter: 2024Q4

REPORT INFORMATION
  Report Type: Report from Study
  Country: JP (occurrence: JP)
  Receive Date: 20240702
  Receipt Date: 20241126
  Transmission Date: 20250114
  Serious: Yes (Life-Threatening, Hospitalization, Other)
  Sender: ALEXION PHARMACEUTICALS
  Company Number: 2024A129677

PATIENT
  Age: 54 Year
  Weight: 48 kg

DRUGS (36)
  1. OLAPARIB [Suspect]
     Active Substance: OLAPARIB
     Indication: Breast cancer
     Dosage: 150 MILLIGRAM, BID
  2. OLAPARIB [Suspect]
     Active Substance: OLAPARIB
     Dosage: 150 MILLIGRAM, BID
  3. OLAPARIB [Suspect]
     Active Substance: OLAPARIB
     Dosage: 150 MILLIGRAM, BID
  4. OLAPARIB [Suspect]
     Active Substance: OLAPARIB
     Dosage: 150 MILLIGRAM, BID
  5. CARBOCYSTEINE [Suspect]
     Active Substance: CARBOCYSTEINE
     Dosage: 250 MILLIGRAM, UNK
  6. CARBOCYSTEINE [Suspect]
     Active Substance: CARBOCYSTEINE
     Dosage: 250 MILLIGRAM, UNK
  7. CALCIUM CARBONATE\CHOLECALCIFEROL\MAGNESIUM CARBONATE [Suspect]
     Active Substance: CALCIUM CARBONATE\CHOLECALCIFEROL\MAGNESIUM CARBONATE
     Indication: Breast cancer
     Dosage: 2 DF
  8. CALCIUM CARBONATE\CHOLECALCIFEROL\MAGNESIUM CARBONATE [Suspect]
     Active Substance: CALCIUM CARBONATE\CHOLECALCIFEROL\MAGNESIUM CARBONATE
     Dosage: 2 DF
  9. URSODIOL [Suspect]
     Active Substance: URSODIOL
     Indication: Liver disorder
     Dosage: 100 MILLIGRAM, UNK
  10. URSODIOL [Suspect]
     Active Substance: URSODIOL
     Dosage: 100 MILLIGRAM, UNK
  11. MAGNESIUM OXIDE [Suspect]
     Active Substance: MAGNESIUM OXIDE
     Indication: Constipation
     Dosage: 330 MILLIGRAM, UNK
  12. MAGNESIUM OXIDE [Suspect]
     Active Substance: MAGNESIUM OXIDE
     Dosage: 330 MILLIGRAM, UNK
  13. PROCHLORPERAZINE [Suspect]
     Active Substance: PROCHLORPERAZINE
     Indication: Nausea
     Dosage: 5 MILLIGRAM, UNK
  14. PROCHLORPERAZINE [Suspect]
     Active Substance: PROCHLORPERAZINE
     Dosage: 5 MILLIGRAM, UNK
  15. PROCHLORPERAZINE [Suspect]
     Active Substance: PROCHLORPERAZINE
     Dosage: 5 MILLIGRAM, UNK
  16. PROCHLORPERAZINE [Suspect]
     Active Substance: PROCHLORPERAZINE
     Dosage: 5 MILLIGRAM, UNK
  17. MS CONTIN [Suspect]
     Active Substance: MORPHINE SULFATE
     Indication: Pain
     Dosage: 10 MILLIGRAM, UNK
  18. MS CONTIN [Suspect]
     Active Substance: MORPHINE SULFATE
     Dosage: 10 MILLIGRAM, UNK
  19. CODEINE PHOSPHATE [Suspect]
     Active Substance: CODEINE PHOSPHATE
     Indication: Cough
     Dosage: 20 MILLIGRAM, UNK
  20. CODEINE PHOSPHATE [Suspect]
     Active Substance: CODEINE PHOSPHATE
     Dosage: 20 MILLIGRAM, UNK
  21. LOXOPROFEN [Suspect]
     Active Substance: LOXOPROFEN
     Indication: Pain
     Dosage: 60 MILLIGRAM, UNK
  22. LOXOPROFEN [Suspect]
     Active Substance: LOXOPROFEN
     Dosage: 60 MILLIGRAM, UNK
  23. LOXOPROFEN [Suspect]
     Active Substance: LOXOPROFEN
     Dosage: 60 MILLIGRAM, UNK
  24. LOXOPROFEN [Suspect]
     Active Substance: LOXOPROFEN
     Dosage: 60 MILLIGRAM, UNK
  25. REBAMIPIDE [Suspect]
     Active Substance: REBAMIPIDE
     Indication: Prophylaxis
     Dosage: 100 MILLIGRAM, UNK
  26. REBAMIPIDE [Suspect]
     Active Substance: REBAMIPIDE
     Dosage: 100 MILLIGRAM, UNK
  27. REBAMIPIDE [Suspect]
     Active Substance: REBAMIPIDE
     Dosage: 100 MILLIGRAM, UNK
  28. REBAMIPIDE [Suspect]
     Active Substance: REBAMIPIDE
     Dosage: 100 MILLIGRAM, UNK
  29. SODIUM PICOSULFATE [Suspect]
     Active Substance: SODIUM PICOSULFATE
     Indication: Constipation
     Dosage: 10 DF
  30. SODIUM PICOSULFATE [Suspect]
     Active Substance: SODIUM PICOSULFATE
     Dosage: 10 DF
  31. SODIUM PICOSULFATE [Suspect]
     Active Substance: SODIUM PICOSULFATE
     Dosage: 10 DF
  32. SODIUM PICOSULFATE [Suspect]
     Active Substance: SODIUM PICOSULFATE
     Dosage: 10 DF
  33. CALCIUM POLYSTYRENE SULFONATE [Suspect]
     Active Substance: CALCIUM POLYSTYRENE SULFONATE
     Indication: Hyperkalaemia
     Dosage: 5 G
  34. CALCIUM POLYSTYRENE SULFONATE [Suspect]
     Active Substance: CALCIUM POLYSTYRENE SULFONATE
     Dosage: 5 G
  35. CALCIUM POLYSTYRENE SULFONATE [Suspect]
     Active Substance: CALCIUM POLYSTYRENE SULFONATE
     Dosage: 5 G
  36. CALCIUM POLYSTYRENE SULFONATE [Suspect]
     Active Substance: CALCIUM POLYSTYRENE SULFONATE
     Dosage: 5 G

REACTIONS (1)
  - Drug-induced liver injury [Not Recovered/Not Resolved]
